FAERS Safety Report 5146613-3 (Version None)
Quarter: 2006Q4

REPORT INFORMATION
  Report Type: 
  Country: None (occurrence: None)
  Receive Date: 20061102
  Receipt Date: 20061020
  Transmission Date: 20070319
  Serious: Yes (Hospitalization, Other)
  Sender: FDA-Public Use
  Company Number: 2006086779

PATIENT
  Age: 71 Year
  Sex: Male
  Weight: 60 kg

DRUGS (17)
  1. VFEND [Suspect]
     Indication: DRUG USE FOR UNKNOWN INDICATION
     Dosage: 400 MG, ORAL
     Route: 048
     Dates: start: 20060630, end: 20060703
  2. ZYVOX [Suspect]
     Indication: DRUG USE FOR UNKNOWN INDICATION
     Dosage: 1200 MG (600 MG, FREQUENCY: BID), INTRAVENOUS
     Route: 042
     Dates: start: 20060630, end: 20060703
  3. ASPIRIN [Concomitant]
  4. DIOVAN [Concomitant]
  5. FAMOTIDINE [Concomitant]
  6. LASIX [Concomitant]
  7. LIVALO (ITAVASTATIN) [Concomitant]
  8. CONIEL (BENIDIPINE HYDROCHLORIDE) [Concomitant]
  9. MUCODYNE (CARBOCISTEINE) [Concomitant]
  10. PREDNISOLONE [Concomitant]
  11. CALCIUM LACTATE (CALCIUM LACTATE) [Concomitant]
  12. METFORMIN HCL [Concomitant]
  13. RIMATIL (BUCILLAMINE) [Concomitant]
  14. MUCOSTA (REBAMIPIDE) [Concomitant]
  15. ALFAROL (ALFACALCIDOL) [Concomitant]
  16. CLARITHROMYCIN [Concomitant]
  17. MUCOSOLVAN (AMBROXOL HYDROCHLORIDE) [Concomitant]

REACTIONS (3)
  - ABNORMAL SENSATION IN EYE [None]
  - BLOOD PRESSURE DECREASED [None]
  - RENAL IMPAIRMENT [None]
